FAERS Safety Report 25944479 (Version 1)
Quarter: 2025Q4

REPORT INFORMATION
  Report Type: Spontaneous
  Country: US (occurrence: None)
  Receive Date: 20251021
  Receipt Date: 20251021
  Transmission Date: 20260118
  Serious: No
  Sender: FDA-CTU
  Company Number: None

PATIENT

DRUGS (1)
  1. CLONIDINE [Suspect]
     Active Substance: CLONIDINE

REACTIONS (4)
  - Treatment failure [None]
  - Blood pressure decreased [None]
  - Heart rate decreased [None]
  - Therapy cessation [None]

NARRATIVE: CASE EVENT DATE: 20251021
